FAERS Safety Report 24632381 (Version 3)
Quarter: 2025Q1

REPORT INFORMATION
  Report Type: Spontaneous
  Country: US (occurrence: US)
  Receive Date: 20241118
  Receipt Date: 20250319
  Transmission Date: 20250408
  Serious: Yes (Other)
  Sender: CSL BEHRING
  Company Number: US-BEH-2024182671

PATIENT
  Sex: Female

DRUGS (7)
  1. PRIVIGEN [Suspect]
     Active Substance: HUMAN IMMUNOGLOBULIN G
     Indication: Myasthenia gravis
     Route: 065
     Dates: start: 2012
  2. PRIVIGEN [Suspect]
     Active Substance: HUMAN IMMUNOGLOBULIN G
     Indication: Off label use
     Route: 065
  3. PRIVIGEN [Suspect]
     Active Substance: HUMAN IMMUNOGLOBULIN G
     Route: 065
  4. PRIVIGEN [Suspect]
     Active Substance: HUMAN IMMUNOGLOBULIN G
     Dosage: 35 MG DAILY 2 DAYS PER MONTH
     Route: 042
     Dates: start: 202411
  5. PYRIDOSTIGMINE BROMIDE [Suspect]
     Active Substance: PYRIDOSTIGMINE BROMIDE
     Route: 065
  6. MYCOPHENOLATE MOFETIL [Suspect]
     Active Substance: MYCOPHENOLATE MOFETIL
     Route: 065
  7. VYVGART [Suspect]
     Active Substance: EFGARTIGIMOD ALFA-FCAB
     Route: 065

REACTIONS (29)
  - Myasthenia gravis [Unknown]
  - Pulmonary congestion [Unknown]
  - Fall [Unknown]
  - Headache [Unknown]
  - Pain [Unknown]
  - Oropharyngeal pain [Unknown]
  - Cough [Unknown]
  - Diarrhoea [Unknown]
  - Nasopharyngitis [Unknown]
  - Bronchitis [Unknown]
  - Herpes zoster [Unknown]
  - Vein disorder [Unknown]
  - Sinus congestion [Unknown]
  - Off label use [Unknown]
  - Diplopia [Unknown]
  - Nausea [Unknown]
  - Therapy change [Unknown]
  - Therapy cessation [Unknown]
  - Fatigue [Unknown]
  - Somnolence [Unknown]
  - Sluggishness [Unknown]
  - Asthenia [Unknown]
  - Seasonal allergy [Unknown]
  - Tremor [Unknown]
  - Rash [Unknown]
  - Pruritus [Unknown]
  - Burning sensation [Unknown]
  - Herpes zoster [Unknown]
  - Nerve injury [Unknown]

NARRATIVE: CASE EVENT DATE: 20180101
